FAERS Safety Report 6880505-4 (Version None)
Quarter: 2010Q3

REPORT INFORMATION
  Report Type: 
  Country: None (occurrence: None)
  Receive Date: 20100727
  Receipt Date: 20100721
  Transmission Date: 20110219
  Serious: Yes (Hospitalization)
  Sender: FDA-Public Use
  Company Number: A0872134A

PATIENT
  Age: 71 Year
  Sex: Female

DRUGS (1)
  1. AVANDIA [Suspect]
     Dosage: 4MG TWICE PER DAY
     Route: 048
     Dates: start: 20030421, end: 20070524

REACTIONS (4)
  - ARTERIAL DISORDER [None]
  - ARTERIOSCLEROSIS [None]
  - CARDIAC DISORDER [None]
  - RENAL FAILURE [None]
